FAERS Safety Report 4935514-9 (Version None)
Quarter: 2006Q1

REPORT INFORMATION
  Report Type: 
  Country: None (occurrence: None)
  Receive Date: 20060307
  Receipt Date: 20050824
  Transmission Date: 20060701
  Serious: Yes (Other)
  Sender: FDA-Public Use
  Company Number: US-GLAXOSMITHKLINE-A0571630A

PATIENT
  Sex: Female

DRUGS (7)
  1. REQUIP [Suspect]
     Indication: RESTLESS LEGS SYNDROME
     Dosage: 1MG PER DAY
     Route: 048
     Dates: start: 20050801
  2. LEVOXYL [Concomitant]
  3. UNSPECIFIED MEDICATION [Concomitant]
  4. CYMBALTA [Concomitant]
  5. LEXAPRO [Concomitant]
  6. SEROQUEL [Concomitant]
  7. ZELNORM [Concomitant]

REACTIONS (8)
  - CHEST DISCOMFORT [None]
  - COLD SWEAT [None]
  - DIZZINESS [None]
  - HYPOGLYCAEMIA [None]
  - MUSCLE TWITCHING [None]
  - PALPITATIONS [None]
  - SENSORY DISTURBANCE [None]
  - SYNCOPE [None]
